FAERS Safety Report 4306848-6 (Version None)
Quarter: 2004Q1

REPORT INFORMATION
  Report Type: 
  Country: None (occurrence: None)
  Receive Date: 20040225
  Receipt Date: 20021009
  Transmission Date: 20041129
  Serious: Yes (Life-Threatening)
  Sender: FDA-Public Use
  Company Number: 2002IC000287

PATIENT
  Age: 59 Year
  Sex: Female

DRUGS (7)
  1. FLUOROURACIL [Suspect]
     Indication: METASTATIC NEOPLASM
     Dosage: SEE IMAGE
     Route: 042
     Dates: start: 20020717, end: 20020721
  2. FLUOROURACIL [Suspect]
     Indication: METASTATIC NEOPLASM
     Dosage: SEE IMAGE
     Route: 042
     Dates: start: 20020820, end: 20020824
  3. RANDA [Concomitant]
  4. KYTRIL [Concomitant]
  5. DIAZEPAM [Concomitant]
  6. SOLU-MEDROL [Concomitant]
  7. LORAZEPAM [Concomitant]

REACTIONS (12)
  - CRANIAL NERVE DISORDER [None]
  - DELIRIUM [None]
  - DEPRESSED LEVEL OF CONSCIOUSNESS [None]
  - FAECAL INCONTINENCE [None]
  - HALLUCINATIONS, MIXED [None]
  - LEUKOENCEPHALOPATHY [None]
  - MEMORY IMPAIRMENT [None]
  - NAUSEA [None]
  - NUCLEAR MAGNETIC RESONANCE IMAGING BRAIN ABNORMAL [None]
  - SPEECH DISORDER [None]
  - TINNITUS [None]
  - URINARY INCONTINENCE [None]
